FAERS Safety Report 6045867-9 (Version None)
Quarter: 2009Q1

REPORT INFORMATION
  Report Type: 
  Country: None (occurrence: None)
  Receive Date: 20090121
  Receipt Date: 20090116
  Transmission Date: 20090719
  Serious: No
  Sender: FDA-Public Use
  Company Number: US-B.I. PHARMACEUTICALS,INC./RIDGEFIELD-2008-BP-18025BP

PATIENT
  Sex: Male
  Weight: 81 kg

DRUGS (2)
  1. COMBIVENT [Suspect]
     Indication: COUGH
     Dosage: 8PUF
     Route: 055
     Dates: start: 20081124, end: 20081128
  2. COMBIVENT [Suspect]
     Indication: INCREASED UPPER AIRWAY SECRETION

REACTIONS (4)
  - COUGH [None]
  - EYE PRURITUS [None]
  - MEDICATION ERROR [None]
  - OCULAR HYPERAEMIA [None]
